FAERS Safety Report 9044655 (Version 1)
Quarter: 2013Q1

REPORT INFORMATION
  Report Type: Spontaneous
  Country: JP (occurrence: JP)
  Receive Date: 20130130
  Receipt Date: 20130130
  Transmission Date: 20140127
  Serious: Yes (Hospitalization)
  Sender: FDA-Public Use
  Company Number: JP-SPECTRUM PHARMACEUTICALS, INC.-12-Z-JP-00193

PATIENT
  Sex: 0

DRUGS (5)
  1. ZEVALIN [Suspect]
     Indication: FOLLICLE CENTRE LYMPHOMA, FOLLICULAR GRADE I, II, III
     Dosage: UNK
     Route: 042
     Dates: start: 20120710, end: 20120710
  2. RITUXIMAB [Suspect]
     Indication: FOLLICLE CENTRE LYMPHOMA, FOLLICULAR GRADE I, II, III
     Dosage: 480 MG, QD
     Dates: start: 20120710, end: 20120710
  3. RITUXIMAB [Suspect]
     Dosage: 480 MG, QD
     Route: 042
     Dates: start: 20120703, end: 20120703
  4. SOLU-CORTEF [Concomitant]
     Dosage: UNK
     Dates: start: 20120703, end: 20120710
  5. ZEVALIN [Suspect]
     Indication: FOLLICLE CENTRE LYMPHOMA, FOLLICULAR GRADE I, II, III
     Dosage: UNK
     Route: 042
     Dates: start: 20120703, end: 20120703

REACTIONS (1)
  - Meningitis aseptic [Recovered/Resolved]
